FAERS Safety Report 13650618 (Version 1)
Quarter: 2017Q2

REPORT INFORMATION
  Report Type: Spontaneous
  Country: GB (occurrence: GB)
  Receive Date: 20170614
  Receipt Date: 20170614
  Transmission Date: 20170830
  Serious: Yes (Other)
  Sender: FDA-Public Use
  Company Number: GB-AUROBINDO-AUR-APL-2015-06612

PATIENT
  Sex: Female

DRUGS (1)
  1. RISPERIDONE FILM-COATED TABLETS [Suspect]
     Active Substance: RISPERIDONE
     Indication: PSYCHOTIC DISORDER
     Dosage: UNK
     Route: 048
     Dates: start: 200805, end: 2012

REACTIONS (1)
  - Oromandibular dystonia [Not Recovered/Not Resolved]

NARRATIVE: CASE EVENT DATE: 201109
